FAERS Safety Report 6394261-X (Version None)
Quarter: 2009Q4

REPORT INFORMATION
  Report Type: 
  Country: None (occurrence: None)
  Receive Date: 20091006
  Receipt Date: 20090925
  Transmission Date: 20100525
  Serious: Yes (Death)
  Sender: FDA-Public Use
  Company Number: 220053K09GBR

PATIENT
  Age: 49 Year
  Sex: Male
  Weight: 67 kg

DRUGS (2)
  1. SAIZEN [Suspect]
     Indication: HYPOPITUITARISM
     Dosage: 8, 1 IN 1 DAYS, SUBCUTANEOUS
     Route: 058
     Dates: start: 20080201, end: 20090815
  2. VARIOUS MEDICATIONS     (ALL OTHER THERAPEUTIC PRODUCTS) [Concomitant]

REACTIONS (4)
  - ARTERIAL RUPTURE [None]
  - CEREBROVASCULAR ACCIDENT [None]
  - NECROSIS OF ARTERY [None]
  - SUBARACHNOID HAEMORRHAGE [None]
